FAERS Safety Report 8338312-1 (Version None)
Quarter: 2012Q2

REPORT INFORMATION
  Report Type: 
  Country: None (occurrence: None)
  Receive Date: 20120504
  Receipt Date: 20120424
  Transmission Date: 20120825
  Serious: Yes (Hospitalization, Other)
  Sender: FDA-Public Use
  Company Number: US-ACTELION-A-US2003-02207

PATIENT
  Sex: Female

DRUGS (9)
  1. LIPITOR [Concomitant]
     Dosage: 5 MG, QD
  2. TRACLEER [Suspect]
     Indication: PULMONARY ARTERIAL HYPERTENSION
     Dosage: 62.5 MG, BID
     Route: 048
     Dates: start: 20021216
  3. COUMADIN [Concomitant]
     Dosage: 10 MG, QD
  4. VITAMIN B COMPLEX CAP [Concomitant]
     Indication: ANAEMIA
     Dosage: 1 SHOT PER MONTH
  5. TRACLEER [Suspect]
     Dosage: 62.5 MG, BID
     Route: 048
     Dates: start: 20030124, end: 20030207
  6. TRACLEER [Suspect]
     Dosage: 125 MG, BID
     Route: 048
     Dates: start: 20030208, end: 20030210
  7. SYNTHROID [Concomitant]
  8. LASIX [Concomitant]
     Dosage: 80 MG, BID
  9. FLOLAN [Concomitant]
     Dosage: 1.5 MG, QID

REACTIONS (11)
  - NAUSEA [None]
  - VOMITING [None]
  - VITAMIN B COMPLEX DEFICIENCY [None]
  - VISION BLURRED [None]
  - DIABETES MELLITUS [None]
  - ATRIAL FIBRILLATION [None]
  - ATRIAL TACHYCARDIA [None]
  - BLOOD GLUCOSE INCREASED [None]
  - FALL [None]
  - OEDEMA PERIPHERAL [None]
  - PALPITATIONS [None]
